FAERS Safety Report 7945140-5 (Version None)
Quarter: 2011Q4

REPORT INFORMATION
  Report Type: 
  Country: None (occurrence: None)
  Receive Date: 20111129
  Receipt Date: 20111129
  Transmission Date: 20120403
  Serious: Yes (Other)
  Sender: FDA-Public Use
  Company Number: None

PATIENT
  Age: 35 Year
  Sex: Male
  Weight: 90.718 kg

DRUGS (1)
  1. PROPECIA [Suspect]
     Indication: ALOPECIA
     Dosage: 1MG
     Route: 048
     Dates: start: 20020101, end: 20050201

REACTIONS (4)
  - HYPOAESTHESIA [None]
  - SEXUAL DYSFUNCTION [None]
  - ERECTILE DYSFUNCTION [None]
  - PENILE SIZE REDUCED [None]
